FAERS Safety Report 8839444 (Version 1)
Quarter: 2012Q4

REPORT INFORMATION
  Report Type: Spontaneous
  Country: US (occurrence: None)
  Receive Date: 20121012
  Receipt Date: 20121012
  Transmission Date: 20130627
  Serious: Yes (Other)
  Sender: FDA-Public Use
  Company Number: None

PATIENT
  Age: 31 Year
  Sex: Female
  Weight: 72.58 kg

DRUGS (9)
  1. MONTELUKAST [Suspect]
     Indication: SEASONAL ALLERGY
     Dosage: 10.4mg 1 time daily po
     Route: 048
     Dates: start: 20121003, end: 20121005
  2. MONTELUKAST [Suspect]
     Indication: ALLERGIC ASTHMA
     Dosage: 10.4mg 1 time daily po
     Route: 048
     Dates: start: 20121003, end: 20121005
  3. ZYRTEC [Concomitant]
  4. ASTEPRO [Concomitant]
  5. NASONEX [Concomitant]
  6. BEYAZ [Concomitant]
  7. AMOX-CLAV [Concomitant]
  8. ALEVE [Concomitant]
  9. ALBUTEROL [Concomitant]

REACTIONS (5)
  - Oropharyngeal pain [None]
  - Aphasia [None]
  - Dyspnoea [None]
  - Insomnia [None]
  - Pharyngeal oedema [None]
